FAERS Safety Report 22293292 (Version 1)
Quarter: 2023Q2

REPORT INFORMATION
  Report Type: Spontaneous
  Country: US (occurrence: US)
  Receive Date: 20230508
  Receipt Date: 20230508
  Transmission Date: 20230721
  Serious: Yes (Hospitalization)
  Sender: FDA-Public Use
  Company Number: US-BEH-2023158227

PATIENT
  Sex: Male

DRUGS (1)
  1. HIZENTRA [Suspect]
     Active Substance: HUMAN IMMUNOGLOBULIN G
     Indication: Hypogammaglobulinaemia
     Dosage: 16 GRAM, QOW
     Route: 058
     Dates: start: 20191214

REACTIONS (7)
  - Pulmonary oedema [Unknown]
  - Pneumonia [Unknown]
  - Respiratory distress [Unknown]
  - Urine output decreased [Unknown]
  - Weight abnormal [Unknown]
  - No adverse event [Unknown]
  - Therapy cessation [Unknown]
